FAERS Safety Report 11580860 (Version 1)
Quarter: 2015Q4

REPORT INFORMATION
  Report Type: Report from Study
  Country: US (occurrence: US)
  Receive Date: 20151001
  Receipt Date: 20151001
  Transmission Date: 20160304
  Serious: Yes (Other)
  Sender: FDA-Public Use
  Company Number: US-AMGEN-USASL2015101139

PATIENT
  Sex: Male
  Weight: .43 kg

DRUGS (3)
  1. PREDNISONE. [Concomitant]
     Active Substance: PREDNISONE
     Dosage: 5 MG, QD
     Route: 048
     Dates: start: 20150108, end: 20150922
  2. ENBREL [Suspect]
     Active Substance: ETANERCEPT
     Indication: EXPOSURE DURING PREGNANCY
     Dosage: 50 MG, QWK
     Route: 064
     Dates: start: 20130614, end: 20140920
  3. SULFASALAZINE. [Concomitant]
     Active Substance: SULFASALAZINE
     Dosage: 50 MG, BID (3 TABLETS 2XDAY)
     Route: 048
     Dates: start: 2010

REACTIONS (2)
  - Foetal heart rate deceleration abnormality [Unknown]
  - Foetal macrosomia [Unknown]
